FAERS Safety Report 6000046-6 (Version None)
Quarter: 2008Q4

REPORT INFORMATION
  Report Type: 
  Country: None (occurrence: None)
  Receive Date: 20081215
  Receipt Date: 20081211
  Transmission Date: 20090506
  Serious: Yes (Other)
  Sender: FDA-Public Use
  Company Number: A0760010A

PATIENT
  Age: 61 Year
  Sex: Male

DRUGS (10)
  1. VERAMYST [Suspect]
     Dosage: 2SPR PER DAY
     Route: 045
     Dates: start: 20080925, end: 20081208
  2. BUPROPION HCL [Concomitant]
  3. GEMFIBROZIL [Concomitant]
  4. METOPROLOL [Concomitant]
  5. OMEPRAZOLE [Concomitant]
  6. MELOXICAM [Concomitant]
  7. ASPIRIN [Concomitant]
  8. LISINOPRIL [Concomitant]
  9. TAMSULOSIN HCL [Concomitant]
  10. LORA TAB [Concomitant]

REACTIONS (6)
  - CELLULITIS [None]
  - NASAL DISCOMFORT [None]
  - NASAL OEDEMA [None]
  - RHINALGIA [None]
  - SLEEP DISORDER [None]
  - SWELLING FACE [None]
